FAERS Safety Report 23080688 (Version 1)
Quarter: 2023Q4

REPORT INFORMATION
  Report Type: Other
  Country: DE (occurrence: None)
  Receive Date: 20231018
  Receipt Date: 20231018
  Transmission Date: 20240109
  Serious: Yes (Other)
  Sender: FDA-Public Use
  Company Number: DE-ROCHE-3438611

PATIENT
  Age: 57 Year
  Sex: Female
  Weight: 96 kg

DRUGS (2)
  1. OCREVUS [Suspect]
     Active Substance: OCRELIZUMAB
     Indication: Relapsing multiple sclerosis
     Dosage: ON 28/OCT/2019, SHE RECEIVED MOST RECENT DOSE OF IV OCRELIZUMAB 300 MG.
     Route: 042
     Dates: start: 20191014
  2. NATALIZUMAB [Suspect]
     Active Substance: NATALIZUMAB
     Indication: Relapsing multiple sclerosis
     Route: 042
     Dates: start: 20200716, end: 20221103

REACTIONS (1)
  - JC polyomavirus test positive [Unknown]

NARRATIVE: CASE EVENT DATE: 20221103
